FAERS Safety Report 10432992 (Version 1)
Quarter: 2014Q3

REPORT INFORMATION
  Report Type: Spontaneous
  Country: US (occurrence: None)
  Receive Date: 20140904
  Receipt Date: 20140904
  Transmission Date: 20150326
  Serious: Yes (Life-Threatening, Hospitalization)
  Sender: FDA-Public Use
  Company Number: None

PATIENT
  Age: 73 Year
  Sex: Female
  Weight: 73.39 kg

DRUGS (1)
  1. METHOTREXATE 25MG/ML INJ. 25MG/ML HOSPIRA [Suspect]
     Active Substance: METHOTREXATE
     Indication: RHEUMATOID ARTHRITIS
     Dosage: 0.7 ML (17.5 MG) ?SQ?WEEKLY??THERAPY?WEEKLY-LAST DOSE 6/16/14
     Route: 058
     Dates: end: 20140606

REACTIONS (2)
  - Anaphylactic reaction [None]
  - Acute respiratory failure [None]

NARRATIVE: CASE EVENT DATE: 20140616
